FAERS Safety Report 6417934-9 (Version None)
Quarter: 2009Q4

REPORT INFORMATION
  Report Type: 
  Country: None (occurrence: None)
  Receive Date: 20091028
  Receipt Date: 20091021
  Transmission Date: 20100525
  Serious: Yes (Hospitalization, Other)
  Sender: FDA-Public Use
  Company Number: CHPA2009US20723

PATIENT
  Sex: Female

DRUGS (1)
  1. ASPIRIN [Suspect]
     Indication: PAIN
     Dosage: UNK, UNK
     Route: 048

REACTIONS (5)
  - FALL [None]
  - JOINT DISLOCATION [None]
  - MACULAR DEGENERATION [None]
  - PNEUMONIA [None]
  - POLYMYALGIA RHEUMATICA [None]
